FAERS Safety Report 9969544 (Version 1)
Quarter: 2014Q1

REPORT INFORMATION
  Report Type: Spontaneous
  Country: US (occurrence: None)
  Receive Date: 20140304
  Receipt Date: 20140304
  Transmission Date: 20141002
  Serious: Yes (Hospitalization)
  Sender: FDA-Public Use
  Company Number: None

PATIENT
  Age: 81 Year
  Sex: Female
  Weight: 77.1 kg

DRUGS (2)
  1. WARFARIN 4 MG [Suspect]
     Indication: ATRIAL FIBRILLATION
     Route: 048
     Dates: end: 20140224
  2. WARFARIN 4 MG [Suspect]
     Indication: AORTIC VALVE REPLACEMENT
     Route: 048
     Dates: end: 20140224

REACTIONS (3)
  - Computerised tomogram head abnormal [None]
  - International normalised ratio increased [None]
  - Incorrect dose administered [None]
